FAERS Safety Report 8329090-0 (Version None)
Quarter: 2012Q2

REPORT INFORMATION
  Report Type: 
  Country: None (occurrence: None)
  Receive Date: 20120502
  Receipt Date: 20120419
  Transmission Date: 20120825
  Serious: Yes (Death)
  Sender: FDA-Public Use
  Company Number: SK-CELGENEUS-260-50794-12040352

PATIENT
  Age: 70 Year
  Sex: Female

DRUGS (3)
  1. HYDROXYUREA [Concomitant]
     Indication: LEUKOCYTOSIS
     Route: 065
  2. VIDAZA [Suspect]
     Indication: MYELOPROLIFERATIVE DISORDER
  3. VIDAZA [Suspect]
     Route: 050
     Dates: start: 20110701, end: 20120101

REACTIONS (2)
  - MYELOPROLIFERATIVE DISORDER [None]
  - MYELODYSPLASTIC SYNDROME [None]
